FAERS Safety Report 7368201-0 (Version None)
Quarter: 2011Q1

REPORT INFORMATION
  Report Type: 
  Country: None (occurrence: None)
  Receive Date: 20110323
  Receipt Date: 20110318
  Transmission Date: 20110831
  Serious: No
  Sender: FDA-Public Use
  Company Number: US-PFIZER INC-2011024380

PATIENT
  Sex: Male

DRUGS (4)
  1. NEURONTIN [Suspect]
     Dosage: 8 ML, 3X/DAY
     Route: 048
  2. GLUCOVANCE [Concomitant]
     Dosage: 5/500 MG, UNK
  3. NEURONTIN [Suspect]
     Dosage: UNK
  4. CADUET [Concomitant]
     Dosage: 5/10 MG, UNK

REACTIONS (1)
  - DYSGEUSIA [None]
